FAERS Safety Report 6736233-9 (Version None)
Quarter: 2010Q2

REPORT INFORMATION
  Report Type: 
  Country: None (occurrence: None)
  Receive Date: 20100521
  Receipt Date: 20100409
  Transmission Date: 20101027
  Serious: Yes (Death)
  Sender: FDA-Public Use
  Company Number: JP-BAYER-200911323BYL

PATIENT
  Age: 64 Year
  Sex: Male
  Weight: 55 kg

DRUGS (8)
  1. NEXAVAR [Suspect]
     Indication: RENAL CELL CARCINOMA
     Dosage: UNIT DOSE: 200 MG
     Route: 048
     Dates: start: 20080806, end: 20081017
  2. SENNOSIDE [Concomitant]
     Route: 048
     Dates: end: 20081018
  3. CALCIUM CARBONATE [Concomitant]
     Route: 048
     Dates: end: 20081018
  4. PHOSBLOCK [Concomitant]
     Route: 048
     Dates: end: 20081018
  5. VASOLAN [Concomitant]
     Route: 048
     Dates: start: 20081016, end: 20081017
  6. BUFFERIN [Concomitant]
     Route: 048
     Dates: end: 20081017
  7. PARIET [Concomitant]
     Route: 048
     Dates: end: 20081017
  8. ANTIPLATELET AGENT [Concomitant]
     Indication: CEREBRAL HAEMORRHAGE
     Route: 065

REACTIONS (5)
  - CEREBRAL HAEMORRHAGE [None]
  - CEREBRAL INFARCTION [None]
  - DRUG ERUPTION [None]
  - HYPERTENSION [None]
  - PYREXIA [None]
